FAERS Safety Report 4657606-4 (Version None)
Quarter: 2005Q2

REPORT INFORMATION
  Report Type: 
  Country: None (occurrence: None)
  Receive Date: 20050405
  Receipt Date: 20040520
  Transmission Date: 20051028
  Serious: Yes (Disabling)
  Sender: FDA-Public Use
  Company Number: 2004034255

PATIENT
  Age: 63 Year
  Sex: Male
  Weight: 56.6996 kg

DRUGS (3)
  1. GEODON [Suspect]
     Indication: OBSESSIVE-COMPULSIVE DISORDER
     Dosage: UNK, ORAL
     Route: 048
     Dates: start: 20030501
  2. CLONAZEPAM [Concomitant]
  3. DOXAZOSIN (DOXAZOSIN) [Concomitant]

REACTIONS (3)
  - PNEUMONIA [None]
  - RESTLESS LEGS SYNDROME [None]
  - TREMOR [None]
